FAERS Safety Report 16888132 (Version 2)
Quarter: 2019Q4

REPORT INFORMATION
  Report Type: Spontaneous
  Country: US (occurrence: US)
  Receive Date: 20191006
  Receipt Date: 20191014
  Transmission Date: 20200122
  Serious: No
  Sender: FDA-Public Use
  Company Number: US-MTPC-MTDA2019-0073637

PATIENT

DRUGS (2)
  1. RADICAVA [Suspect]
     Active Substance: EDARAVONE
     Indication: AMYOTROPHIC LATERAL SCLEROSIS
     Dosage: UNK
     Route: 042
     Dates: start: 20190218
  2. RADICAVA [Suspect]
     Active Substance: EDARAVONE
     Dosage: 60 MILLIGRAM OVER ONE HOUR, QD ON THOSE 10 DAYS
     Route: 042
     Dates: start: 20190930

REACTIONS (2)
  - Muscle contractions involuntary [Unknown]
  - Therapeutic response unexpected [Unknown]
